FAERS Safety Report 6874750-1 (Version None)
Quarter: 2010Q3

REPORT INFORMATION
  Report Type: 
  Country: None (occurrence: None)
  Receive Date: 20100723
  Receipt Date: 20100709
  Transmission Date: 20110219
  Serious: Yes (Life-Threatening)
  Sender: FDA-Public Use
  Company Number: 2010002757

PATIENT
  Age: 42 Year
  Sex: Male

DRUGS (1)
  1. TARCEVA [Suspect]
     Indication: PANCREATIC CARCINOMA
     Dosage: (100 MG, QD), ORAL
     Route: 048
     Dates: start: 20100208

REACTIONS (2)
  - HAEMORRHAGE [None]
  - RASH [None]
